FAERS Safety Report 19951457 (Version 1)
Quarter: 2021Q4

REPORT INFORMATION
  Report Type: Spontaneous
  Country: US (occurrence: US)
  Receive Date: 20211013
  Receipt Date: 20211013
  Transmission Date: 20220303
  Serious: Yes (Other)
  Sender: FDA-Public Use
  Company Number: US-PFIZER INC-202101296191

PATIENT
  Age: 71 Year
  Sex: Male
  Weight: 61.23 kg

DRUGS (1)
  1. VFEND [Suspect]
     Active Substance: VORICONAZOLE
     Indication: Pneumonia fungal
     Dosage: 200 MG, CYCLIC (EVERY 12 HOURS)
     Dates: start: 202103, end: 202108

REACTIONS (4)
  - Clostridium difficile infection [Unknown]
  - Abdominal discomfort [Unknown]
  - Abdominal pain [Unknown]
  - Weight decreased [Unknown]
